FAERS Safety Report 9159439 (Version 1)
Quarter: 2013Q1

REPORT INFORMATION
  Report Type: Spontaneous
  Country: US (occurrence: US)
  Receive Date: 20130313
  Receipt Date: 20130313
  Transmission Date: 20140127
  Serious: Yes (Other)
  Sender: FDA-Public Use
  Company Number: PHEH2013US005625

PATIENT
  Sex: Female

DRUGS (1)
  1. DIOVAN [Suspect]
     Dosage: 1 DF, BID (80 MG)

REACTIONS (4)
  - Sciatica [Unknown]
  - Pain in extremity [Unknown]
  - Malaise [Unknown]
  - Body temperature decreased [Unknown]
